FAERS Safety Report 15948440 (Version 4)
Quarter: 2019Q2

REPORT INFORMATION
  Report Type: Report from Study
  Country: US (occurrence: US)
  Receive Date: 20190211
  Receipt Date: 20190521
  Transmission Date: 20190711
  Serious: No
  Sender: FDA-Public Use
  Company Number: US-SA-2019SA036627

PATIENT
  Age: 40 Year
  Sex: Male

DRUGS (2)
  1. DUPILUMAB [Suspect]
     Active Substance: DUPILUMAB
     Indication: DERMATITIS ATOPIC
     Dosage: 600 MG, 1X
     Route: 058
     Dates: start: 20190126, end: 20190126
  2. DUPILUMAB [Suspect]
     Active Substance: DUPILUMAB
     Indication: PROSTATE CANCER
     Dosage: 300 MG, QOW
     Route: 058

REACTIONS (6)
  - Skin disorder [Unknown]
  - Injection site pruritus [Unknown]
  - Conjunctivitis [Unknown]
  - Product use in unapproved indication [Unknown]
  - Product dose omission [Not Recovered/Not Resolved]
  - Erythema [Unknown]

NARRATIVE: CASE EVENT DATE: 2019
